FAERS Safety Report 6971224-4 (Version None)
Quarter: 2010Q3

REPORT INFORMATION
  Report Type: 
  Country: None (occurrence: None)
  Receive Date: 20100824
  Receipt Date: 20100709
  Transmission Date: 20110219
  Serious: No
  Sender: FDA-Public Use
  Company Number: 311735

PATIENT
  Sex: Female

DRUGS (3)
  1. VICTOZA [Suspect]
     Indication: WEIGHT DECREASED
     Dosage: 0.6 MG, QD, SUBCUTANEOUS ; 1.2 QD, SUBCUTANEOUS ; 0.6, SUBCUTANEOUS
     Route: 058
     Dates: start: 20100601, end: 20100601
  2. VICTOZA [Suspect]
     Indication: WEIGHT DECREASED
     Dosage: 0.6 MG, QD, SUBCUTANEOUS ; 1.2 QD, SUBCUTANEOUS ; 0.6, SUBCUTANEOUS
     Route: 058
     Dates: start: 20100601, end: 20100601
  3. VICTOZA [Suspect]
     Indication: WEIGHT DECREASED
     Dosage: 0.6 MG, QD, SUBCUTANEOUS ; 1.2 QD, SUBCUTANEOUS ; 0.6, SUBCUTANEOUS
     Route: 058
     Dates: start: 20100601

REACTIONS (4)
  - HEART RATE INCREASED [None]
  - INFLUENZA LIKE ILLNESS [None]
  - LETHARGY [None]
  - NERVOUSNESS [None]
